FAERS Safety Report 15711048 (Version 6)
Quarter: 2019Q1

REPORT INFORMATION
  Report Type: Report from Study
  Country: BR (occurrence: BR)
  Receive Date: 20181211
  Receipt Date: 20190320
  Transmission Date: 20190417
  Serious: Yes (Hospitalization)
  Sender: FDA-Public Use
  Company Number: PHHY2017BR114386

PATIENT
  Age: 36 Year
  Sex: Female
  Weight: 78 kg

DRUGS (4)
  1. COSENTYX [Suspect]
     Active Substance: SECUKINUMAB
     Dosage: 1 DF, UNK
     Route: 065
     Dates: start: 20181128
  2. COSENTYX [Suspect]
     Active Substance: SECUKINUMAB
     Indication: PSORIATIC ARTHROPATHY
     Dosage: 2 DF, QMO
     Route: 065
     Dates: start: 20161219
  3. COSENTYX [Suspect]
     Active Substance: SECUKINUMAB
     Dosage: 1 DF, UNK
     Route: 065
     Dates: end: 201705
  4. COSENTYX [Suspect]
     Active Substance: SECUKINUMAB
     Dosage: 300 MG, QMO
     Route: 058
     Dates: start: 20181019

REACTIONS (14)
  - Abscess [Recovered/Resolved]
  - Gait disturbance [Unknown]
  - Joint swelling [Recovering/Resolving]
  - Underdose [Not Recovered/Not Resolved]
  - Nervousness [Recovering/Resolving]
  - Psoriasis [Unknown]
  - Malaise [Unknown]
  - Back pain [Recovering/Resolving]
  - Pain [Recovering/Resolving]
  - Arthralgia [Recovering/Resolving]
  - Device malfunction [Unknown]
  - Skin lesion [Unknown]
  - Decreased immune responsiveness [Unknown]
  - Emotional distress [Unknown]

NARRATIVE: CASE EVENT DATE: 201811
